FAERS Safety Report 23553888 (Version 2)
Quarter: 2024Q1

REPORT INFORMATION
  Report Type: Spontaneous
  Country: CA (occurrence: CA)
  Receive Date: 20240222
  Receipt Date: 20240228
  Transmission Date: 20240410
  Serious: Yes (Life-Threatening, Hospitalization)
  Sender: FDA-Public Use
  Company Number: CA-PFIZER INC-202400046450

PATIENT
  Age: 27 Year
  Sex: Male

DRUGS (11)
  1. RITUXIMAB [Interacting]
     Active Substance: RITUXIMAB
     Indication: Immune-mediated myositis
     Dosage: 1.7 G
     Route: 065
  2. RITUXIMAB [Interacting]
     Active Substance: RITUXIMAB
     Dosage: 2 G
     Route: 065
  3. METHOTREXATE SODIUM [Interacting]
     Active Substance: METHOTREXATE SODIUM
     Indication: Immune-mediated myositis
     Dosage: UNK
     Route: 065
  4. DARATUMUMAB [Interacting]
     Active Substance: DARATUMUMAB
     Indication: Immune-mediated myositis
     Dosage: UNK
     Route: 065
  5. HUMAN IMMUNOGLOBULIN G [Interacting]
     Active Substance: HUMAN IMMUNOGLOBULIN G
     Indication: Immune-mediated myositis
     Dosage: 1 G, MONTHLY
     Route: 042
  6. HUMAN IMMUNOGLOBULIN G [Interacting]
     Active Substance: HUMAN IMMUNOGLOBULIN G
     Dosage: 0.5 G, MONTHLY
     Route: 042
  7. HUMAN IMMUNOGLOBULIN G [Interacting]
     Active Substance: HUMAN IMMUNOGLOBULIN G
     Dosage: 2 G, MONTHLY
     Route: 042
  8. TACROLIMUS [Interacting]
     Active Substance: TACROLIMUS
     Indication: Immune-mediated myositis
     Dosage: UNK
     Route: 065
  9. DEXAMETHASONE [Concomitant]
     Active Substance: DEXAMETHASONE
     Indication: Immune-mediated myositis
     Dosage: 20 MG
     Route: 065
  10. PREDNISONE [Concomitant]
     Active Substance: PREDNISONE
     Indication: Immune-mediated myositis
     Dosage: 100 MG
     Route: 065
  11. SULFAMETHOXAZOLE\TRIMETHOPRIM [Concomitant]
     Active Substance: SULFAMETHOXAZOLE\TRIMETHOPRIM
     Indication: Immune-mediated myositis
     Dosage: UNK

REACTIONS (7)
  - Blood immunoglobulin A decreased [Recovering/Resolving]
  - Blood immunoglobulin M decreased [Recovering/Resolving]
  - COVID-19 [Recovering/Resolving]
  - Immune-mediated myositis [Recovering/Resolving]
  - Off label use [Recovering/Resolving]
  - Potentiating drug interaction [Recovering/Resolving]
  - Vascular device infection [Recovering/Resolving]
